FAERS Safety Report 6124661-4 (Version None)
Quarter: 2009Q1

REPORT INFORMATION
  Report Type: 
  Country: None (occurrence: None)
  Receive Date: 20090319
  Receipt Date: 20090304
  Transmission Date: 20090719
  Serious: Yes (Hospitalization, Other)
  Sender: FDA-Public Use
  Company Number: FR-GENENTECH-277881

PATIENT
  Sex: Female

DRUGS (10)
  1. XOLAIR [Suspect]
     Indication: HYPEREOSINOPHILIC SYNDROME
     Dosage: 300 MG, 2/WEEK
     Route: 058
     Dates: start: 20070802, end: 20081015
  2. HEXAQUINE [Suspect]
     Indication: DRUG USE FOR UNKNOWN INDICATION
     Dosage: 3 TABLET, UNK
     Route: 048
     Dates: end: 20090207
  3. PREDNISOLONE [Concomitant]
     Indication: ANALGESIC ASTHMA SYNDROME
     Dosage: UNK
     Dates: start: 20081101
  4. SINGULAIR [Concomitant]
     Indication: DRUG USE FOR UNKNOWN INDICATION
  5. XYZAL [Concomitant]
     Indication: DRUG USE FOR UNKNOWN INDICATION
  6. ACTONEL [Concomitant]
     Indication: DRUG USE FOR UNKNOWN INDICATION
  7. MOPRAL [Concomitant]
     Indication: DRUG USE FOR UNKNOWN INDICATION
  8. LYSANXIA [Concomitant]
     Indication: DRUG USE FOR UNKNOWN INDICATION
  9. MOTILIUM [Concomitant]
     Indication: DRUG USE FOR UNKNOWN INDICATION
  10. BRICANYL [Concomitant]
     Indication: DRUG USE FOR UNKNOWN INDICATION

REACTIONS (1)
  - ALLERGIC GRANULOMATOUS ANGIITIS [None]
